FAERS Safety Report 6474266-0 (Version None)
Quarter: 2009Q4

REPORT INFORMATION
  Report Type: 
  Country: None (occurrence: None)
  Receive Date: 20091204
  Receipt Date: 20091126
  Transmission Date: 20100525
  Serious: Yes (Other)
  Sender: FDA-Public Use
  Company Number: PHHY2009CA52411

PATIENT
  Sex: Female

DRUGS (2)
  1. DIOVAN [Suspect]
     Dosage: 160 MG, 1 TABLET PER DAY
     Route: 048
     Dates: end: 20091119
  2. DIOVAN [Suspect]
     Dosage: 160 MG, 2 TABLETS PER DAY
     Route: 048
     Dates: start: 20091119

REACTIONS (1)
  - BLOOD PRESSURE INCREASED [None]
